FAERS Safety Report 7813184-X (Version None)
Quarter: 2011Q4

REPORT INFORMATION
  Report Type: 
  Country: None (occurrence: None)
  Receive Date: 20111013
  Receipt Date: 20110929
  Transmission Date: 20120403
  Serious: Yes (Death)
  Sender: FDA-Public Use
  Company Number: SE-ROCHE-798813

PATIENT
  Sex: Female

DRUGS (8)
  1. MABTHERA [Suspect]
     Indication: CHRONIC LYMPHOCYTIC LEUKAEMIA
     Dosage: MABTHERA CONC FOR SOLUTION FOR INFUSION, DOSE 800 MG4
     Route: 042
     Dates: start: 20110113, end: 20110415
  2. OXIS TURBOHALER [Concomitant]
     Route: 055
  3. BACTRIM DS [Concomitant]
     Dosage: BACTRIM FORTE TABL 800MG/160MG
     Route: 065
  4. ACYCLOVIR [Concomitant]
     Dosage: ACIKLOVIR UNSPECIFIED
  5. FLUDARA [Suspect]
     Indication: CHRONIC LYMPHOCYTIC LEUKAEMIA
     Dosage: DOSE CC, FLUDARA FC TACL
     Route: 048
     Dates: start: 20101101, end: 20110301
  6. EPREX [Concomitant]
  7. CYCLOPHOSPHAMIDE [Suspect]
     Indication: CHRONIC LYMPHOCYTIC LEUKAEMIA
     Dosage: SENDOXN, DOSE CC.
     Route: 048
     Dates: start: 20101101, end: 20110301
  8. SPIRIVA [Concomitant]
     Dosage: SPIRIVA INHALATION POWDER, HARD CAPS
     Route: 055

REACTIONS (1)
  - PROGRESSIVE MULTIFOCAL LEUKOENCEPHALOPATHY [None]
